FAERS Safety Report 24120800 (Version 3)
Quarter: 2024Q3

REPORT INFORMATION
  Report Type: Report from Study
  Country: US (occurrence: US)
  Receive Date: 20240722
  Receipt Date: 20240819
  Transmission Date: 20241016
  Serious: Yes (Hospitalization)
  Sender: IPSEN
  Company Number: US-IPSEN Group, Research and Development-2024-14209

PATIENT
  Age: 66 Year
  Sex: Male
  Weight: 68.4 kg

DRUGS (4)
  1. TAZVERIK [Suspect]
     Active Substance: TAZEMETOSTAT HYDROBROMIDE
     Indication: Prostate cancer
     Dosage: 600 MG TWICE DAILY
     Route: 048
     Dates: start: 20240216
  2. TAZVERIK [Suspect]
     Active Substance: TAZEMETOSTAT HYDROBROMIDE
     Dosage: 600 MG TWICE DAILY
     Route: 048
     Dates: end: 20240713
  3. TALAZOPARIB [Suspect]
     Active Substance: TALAZOPARIB
     Indication: Prostate cancer
     Dosage: 0.5 MG ONCE DAILY
     Route: 048
     Dates: start: 20240216
  4. TALAZOPARIB [Suspect]
     Active Substance: TALAZOPARIB
     Dosage: 0.5 MG ONCE DAILY
     Route: 048
     Dates: end: 20240713

REACTIONS (3)
  - Back pain [Unknown]
  - Eye pain [Unknown]
  - Vision blurred [Unknown]

NARRATIVE: CASE EVENT DATE: 20240802
